FAERS Safety Report 11567193 (Version 2)
Quarter: 2015Q4

REPORT INFORMATION
  Report Type: Spontaneous
  Country: US (occurrence: US)
  Receive Date: 20150929
  Receipt Date: 20151029
  Transmission Date: 20160304
  Serious: Yes (Other)
  Sender: FDA-Public Use
  Company Number: US-ROCHE-ITM201502IM010751

PATIENT
  Sex: Female
  Weight: 81.27 kg

DRUGS (1)
  1. ESBRIET [Suspect]
     Active Substance: PIRFENIDONE
     Indication: IDIOPATHIC PULMONARY FIBROSIS
     Route: 048
     Dates: start: 201501, end: 201506

REACTIONS (4)
  - Back pain [Unknown]
  - Haematuria [Unknown]
  - Kidney infection [Unknown]
  - Drug interaction [Unknown]
